FAERS Safety Report 8837656 (Version 1)
Quarter: 2012Q4

REPORT INFORMATION
  Report Type: 
  Country: AT (occurrence: AT)
  Receive Date: 20121012
  Receipt Date: 20121012
  Transmission Date: 20130627
  Serious: Yes (Hospitalization)
  Sender: FDA-Public Use
  Company Number: AT-JNJFOC-20121001918

PATIENT
  Age: 48 Year
  Sex: Male

DRUGS (1)
  1. XEPLION [Suspect]
     Indication: SCHIZOPHRENIA
     Route: 030
     Dates: start: 20120420

REACTIONS (3)
  - Cognitive disorder [Recovering/Resolving]
  - Psychotic disorder [Recovering/Resolving]
  - Schizophrenia [Recovering/Resolving]
